FAERS Safety Report 8265000-2 (Version None)
Quarter: 2012Q2

REPORT INFORMATION
  Report Type: 
  Country: None (occurrence: None)
  Receive Date: 20120406
  Receipt Date: 20120331
  Transmission Date: 20120825
  Serious: Yes (Life-Threatening, Hospitalization, Other)
  Sender: FDA-Public Use
  Company Number: DE-TEVA-331503GER

PATIENT
  Sex: Female

DRUGS (1)
  1. COPAXONE [Suspect]
     Indication: MULTIPLE SCLEROSIS
     Dosage: 20 MILLIGRAM;
     Route: 058
     Dates: start: 20120101, end: 20120314

REACTIONS (5)
  - DYSPNOEA [None]
  - BLOOD PRESSURE IMMEASURABLE [None]
  - ANAPHYLACTIC SHOCK [None]
  - FALL [None]
  - CIRCULATORY COLLAPSE [None]
